FAERS Safety Report 25659648 (Version 1)
Quarter: 2025Q3

REPORT INFORMATION
  Report Type: Spontaneous
  Country: US (occurrence: None)
  Receive Date: 20250807
  Receipt Date: 20250807
  Transmission Date: 20251020
  Serious: Yes (Other)
  Sender: FDA-CTU
  Company Number: None

PATIENT
  Age: 60 Year
  Sex: Male
  Weight: 57.78 kg

DRUGS (1)
  1. OMNIPAQUE [Suspect]
     Active Substance: IOHEXOL
     Route: 040

REACTIONS (2)
  - Contrast media allergy [None]
  - Urticaria [None]

NARRATIVE: CASE EVENT DATE: 20250806
